FAERS Safety Report 4551571-6 (Version None)
Quarter: 2005Q1

REPORT INFORMATION
  Report Type: 
  Country: None (occurrence: None)
  Receive Date: 20050110
  Receipt Date: 20041229
  Transmission Date: 20050727
  Serious: Yes (Other)
  Sender: FDA-Public Use
  Company Number: 2005003297

PATIENT
  Sex: Female
  Weight: 68.0396 kg

DRUGS (3)
  1. LISTERINE (MENTHOL, METHYL, SALICYLATE, EUCALYPTOL, THYMOL) [Suspect]
     Indication: TOOTH ABSCESS
     Dosage: UNSPECIFIED HOURLY , ORAL
     Route: 048
     Dates: start: 20041201
  2. ANTIBIOTICS (ANTIBIOTICS) [Concomitant]
  3. ANALGESICS (ANALGESICS) [Concomitant]

REACTIONS (2)
  - BLOOD ALCOHOL INCREASED [None]
  - VISUAL DISTURBANCE [None]
